FAERS Safety Report 21702810 (Version 1)
Quarter: 2022Q4

REPORT INFORMATION
  Report Type: Spontaneous
  Country: BR (occurrence: BR)
  Receive Date: 20221209
  Receipt Date: 20221209
  Transmission Date: 20230113
  Serious: Yes (Other)
  Sender: FDA-Public Use
  Company Number: BR-CELLTRION INC.-2022BR020542

PATIENT

DRUGS (1)
  1. INFLIXIMAB [Suspect]
     Active Substance: INFLIXIMAB
     Indication: Crohn^s disease
     Dosage: 3 AMPULES EVERY 2 MONTHS
     Route: 042
     Dates: start: 20220930

REACTIONS (6)
  - Suspected COVID-19 [Unknown]
  - Cough [Unknown]
  - Pyrexia [Unknown]
  - Product storage error [Unknown]
  - Therapy interrupted [Unknown]
  - Maternal exposure during breast feeding [Unknown]

NARRATIVE: CASE EVENT DATE: 20221007
